FAERS Safety Report 6026029-8 (Version None)
Quarter: 2008Q4

REPORT INFORMATION
  Report Type: 
  Country: None (occurrence: None)
  Receive Date: 20081230
  Receipt Date: 20081212
  Transmission Date: 20090506
  Serious: Yes (Hospitalization)
  Sender: FDA-Public Use
  Company Number: 038211

PATIENT
  Age: 63 Year
  Sex: Male

DRUGS (10)
  1. WARFARIN SODIUM [Suspect]
     Indication: THROMBOSIS PROPHYLAXIS
     Dosage: 5 MG, QD, ORAL
     Route: 048
  2. ENOXAPARIN SODIUM [Suspect]
     Indication: DEEP VEIN THROMBOSIS
     Dosage: 90 MG, BID, SUBCUTANEOUS, 40 MG, QD, SUBCUTANEOUS
     Route: 058
     Dates: start: 20081019, end: 20081022
  3. ENOXAPARIN SODIUM [Suspect]
     Indication: DEEP VEIN THROMBOSIS
     Dosage: 90 MG, BID, SUBCUTANEOUS, 40 MG, QD, SUBCUTANEOUS
     Route: 058
     Dates: start: 20081001
  4. PHENYTOIN (DILANTIN) (PHENYTOIN) [Concomitant]
  5. BICALUTAMIDE (CASODEX) (BICALUTAMIDE) [Concomitant]
  6. METOPROLOL TARTRATE (LOPRESSOR) (METOPROLOL TARTRATE) [Concomitant]
  7. LEUPRORELIN ACETATE (LUPRON) (LEUPRORELIN ACETATE) [Concomitant]
  8. LEVOTHYROXINE SODIUM (SYNTHROID) (LEVOTHYROXINE SODIUM) [Concomitant]
  9. SIMVASTATIN (ZOCOR) (SIMVASTATIN) [Concomitant]
  10. ZOLEDRONIC  ACID (ZOMETA) ZOLEDRONIC ACID) [Concomitant]

REACTIONS (4)
  - COMPARTMENT SYNDROME [None]
  - DEEP VEIN THROMBOSIS [None]
  - MUSCLE HAEMORRHAGE [None]
  - TREATMENT FAILURE [None]
